FAERS Safety Report 11639345 (Version 1)
Quarter: 2015Q4

REPORT INFORMATION
  Report Type: Spontaneous
  Country: JP (occurrence: JP)
  Receive Date: 20151019
  Receipt Date: 20151019
  Transmission Date: 20160304
  Serious: Yes (Other)
  Sender: FDA-Public Use
  Company Number: JP-009507513-1509JPN010521

PATIENT
  Age: 58 Year
  Sex: Male

DRUGS (2)
  1. REBETOL [Suspect]
     Active Substance: RIBAVIRIN
     Indication: HEPATITIS C VIRUS TEST POSITIVE
     Dosage: DAILY DOSE UNKNOWN
     Route: 048
     Dates: start: 2002
  2. PEGINTRON [Suspect]
     Active Substance: PEGINTERFERON ALFA-2B
     Indication: HEPATITIS C VIRUS TEST POSITIVE
     Dosage: DAILY DOSE UNKNOWN
     Route: 058
     Dates: start: 2002

REACTIONS (5)
  - Anaemia [Unknown]
  - Pyrexia [Unknown]
  - Platelet count decreased [Unknown]
  - Rash [Unknown]
  - Cytopenia [Unknown]
